FAERS Safety Report 22227721 (Version 1)
Quarter: 2023Q2

REPORT INFORMATION
  Report Type: Spontaneous
  Country: US (occurrence: None)
  Receive Date: 20230417
  Receipt Date: 20230417
  Transmission Date: 20230721
  Serious: No
  Sender: FDA-Public Use
  Company Number: None

PATIENT
  Age: 81 Year
  Sex: Female
  Weight: 74.25 kg

DRUGS (17)
  1. VERZENIO [Suspect]
     Active Substance: ABEMACICLIB
     Indication: Breast cancer female
     Dosage: 150MG TWICE A DAY ORAL?
     Route: 048
     Dates: start: 20221024
  2. ANASTROZOLE [Concomitant]
     Active Substance: ANASTROZOLE
  3. STOOL SOFTENER (DOCUSATE) [Concomitant]
     Active Substance: DOCUSATE
  4. OXYBUTYNIN CHLORIDE [Concomitant]
     Active Substance: OXYBUTYNIN CHLORIDE
  5. METOPROLOL TARTRATE [Concomitant]
     Active Substance: METOPROLOL TARTRATE
  6. LOSARTAN POTASSIUM [Concomitant]
     Active Substance: LOSARTAN POTASSIUM
  7. SPIRONOLACTONE [Concomitant]
     Active Substance: SPIRONOLACTONE
  8. HYDROCHLOROTHIAZIDE [Concomitant]
     Active Substance: HYDROCHLOROTHIAZIDE
  9. NOVOLOG [Concomitant]
     Active Substance: INSULIN ASPART
  10. TOUJEO [Concomitant]
     Active Substance: INSULIN GLARGINE
  11. SYSTANE BALANCE [Concomitant]
     Active Substance: PROPYLENE GLYCOL
  12. Latanoprost Ophthalmic [Concomitant]
  13. Muro 128 Ophthalmic Ointment [Concomitant]
  14. BRIMONIDINE TARTRATE [Concomitant]
     Active Substance: BRIMONIDINE TARTRATE
  15. CALCIUM\CHOLECALCIFEROL [Concomitant]
     Active Substance: CALCIUM\CHOLECALCIFEROL
  16. Tylenol 8 [Concomitant]
  17. ONDANSETRON [Concomitant]
     Active Substance: ONDANSETRON

REACTIONS (4)
  - COVID-19 [None]
  - Therapy interrupted [None]
  - Diarrhoea [None]
  - Constipation [None]
